FAERS Safety Report 23273999 (Version 1)
Quarter: 2023Q4

REPORT INFORMATION
  Report Type: Spontaneous
  Country: JP (occurrence: JP)
  Receive Date: 20231207
  Receipt Date: 20231207
  Transmission Date: 20240109
  Serious: Yes (Hospitalization, Other)
  Sender: FDA-Public Use
  Company Number: JP-SA-2023SA357940

PATIENT
  Age: 50 Year
  Sex: Female
  Weight: 55 kg

DRUGS (1)
  1. FABRAZYME [Suspect]
     Active Substance: AGALSIDASE BETA
     Indication: Fabry^s disease
     Dosage: DAILY DOSE: 55
     Route: 041
     Dates: start: 20221129

REACTIONS (4)
  - Cerebral infarction [Recovered/Resolved]
  - Dizziness [Recovered/Resolved]
  - Fabry^s disease [Unknown]
  - Condition aggravated [Unknown]

NARRATIVE: CASE EVENT DATE: 20231028
